FAERS Safety Report 16376083 (Version 4)
Quarter: 2020Q1

REPORT INFORMATION
  Report Type: Spontaneous
  Country: CA (occurrence: CA)
  Receive Date: 20190531
  Receipt Date: 20200207
  Transmission Date: 20200409
  Serious: Yes (Other)
  Sender: FDA-Public Use
  Company Number: CA-TEVA-2019-CA-1055013

PATIENT
  Age: 78 Year
  Sex: Female

DRUGS (6)
  1. DICLOFENAC [Concomitant]
     Active Substance: DICLOFENAC
  2. ZOLEDRONIC ACID INJECTION [Suspect]
     Active Substance: ZOLEDRONIC ACID
     Indication: BONE DENSITY ABNORMAL
     Route: 042
  3. SYNTHROID [Suspect]
     Active Substance: LEVOTHYROXINE SODIUM
     Route: 065
  4. MINERALS/VITAMINS NOS [Concomitant]
     Active Substance: MINERALS\VITAMINS
  5. CALCIUM DPANTOTHENATE/D-ALPHA TOCOPHERYL ACETATE/NICOTINAMIDE/ PYRIDOX [Concomitant]
  6. POLYETHYLENE GLYCOL [Concomitant]
     Active Substance: POLYETHYLENE GLYCOLS

REACTIONS (16)
  - Arthralgia [Unknown]
  - Groin pain [Unknown]
  - Headache [Unknown]
  - Bone pain [Unknown]
  - Pain in extremity [Unknown]
  - Insomnia [Unknown]
  - Abdominal pain [Unknown]
  - Condition aggravated [Unknown]
  - Lethargy [Unknown]
  - Asthenia [Unknown]
  - Fatigue [Unknown]
  - Arthritis [Unknown]
  - Dyspepsia [Unknown]
  - Myalgia [Unknown]
  - Nasal congestion [Unknown]
  - Tenderness [Unknown]
